FAERS Safety Report 5848013-7 (Version None)
Quarter: 2008Q3

REPORT INFORMATION
  Report Type: 
  Country: None (occurrence: None)
  Receive Date: 20080818
  Receipt Date: 20080806
  Transmission Date: 20090109
  Serious: Yes (Hospitalization)
  Sender: FDA-Public Use
  Company Number: GB-AMGEN-UK248687

PATIENT
  Sex: Male

DRUGS (17)
  1. PANITUMUMAB [Suspect]
     Indication: COLORECTAL CANCER
     Route: 042
     Dates: start: 20070820, end: 20070903
  2. DEXAMETHASONE TAB [Concomitant]
     Route: 042
     Dates: start: 20070820, end: 20070903
  3. GRANISITRON [Concomitant]
     Route: 042
     Dates: start: 20070820, end: 20070903
  4. DOMPERIDONE [Concomitant]
     Route: 048
     Dates: start: 20070820, end: 20070914
  5. CETIRIZINE HCL [Concomitant]
     Route: 048
     Dates: start: 20070901, end: 20070914
  6. DEXAMETHASONE TAB [Concomitant]
     Route: 048
     Dates: start: 20070820, end: 20070914
  7. NITROGLYCERIN [Concomitant]
     Route: 048
     Dates: start: 20020101
  8. SIMVASTATIN [Concomitant]
     Route: 048
     Dates: start: 20020101
  9. CANDESARTAN [Concomitant]
     Route: 048
     Dates: start: 20020101
  10. OMEPRAZOLE [Concomitant]
     Route: 048
  11. FUROSEMIDE [Concomitant]
     Route: 048
     Dates: start: 20020101
  12. ASPIRIN [Concomitant]
     Route: 048
     Dates: start: 20020101
  13. METFORMIN HCL [Concomitant]
     Route: 048
  14. DILTIAZEM HCL [Concomitant]
     Route: 048
     Dates: start: 20020101
  15. TAMSULOSIN HCL [Concomitant]
     Route: 048
     Dates: start: 20020101
  16. ROSIGLITAZONE [Concomitant]
     Route: 048
  17. OXYTETRACYCLINE [Concomitant]
     Route: 048
     Dates: start: 20070903

REACTIONS (2)
  - DIARRHOEA [None]
  - RENAL FAILURE [None]
